FAERS Safety Report 8108546-X (Version None)
Quarter: 2012Q1

REPORT INFORMATION
  Report Type: 
  Country: None (occurrence: None)
  Receive Date: 20120202
  Receipt Date: 20120131
  Transmission Date: 20120608
  Serious: Yes (Other)
  Sender: FDA-Public Use
  Company Number: PHHY2012GR008369

PATIENT
  Age: 59 Year
  Sex: Female

DRUGS (3)
  1. TASIGNA [Suspect]
     Dosage: 150 MG, BID
     Route: 048
  2. TASIGNA [Suspect]
     Dosage: 300 MG, BID
     Route: 048
  3. TASIGNA [Suspect]
     Indication: CHRONIC MYELOID LEUKAEMIA
     Dosage: 300 MG, BID
     Route: 048

REACTIONS (5)
  - CHLOROMA [None]
  - HAEMATOTOXICITY [None]
  - SARCOMA [None]
  - BONE PAIN [None]
  - ACUTE MYELOID LEUKAEMIA [None]
